FAERS Safety Report 23732064 (Version 1)
Quarter: 2024Q2

REPORT INFORMATION
  Report Type: Spontaneous
  Country: EG (occurrence: EG)
  Receive Date: 20240411
  Receipt Date: 20240411
  Transmission Date: 20240716
  Serious: Yes (Hospitalization, Other)
  Sender: FDA-Public Use
  Company Number: EG-HIKMA PHARMACEUTICALS USA INC.-EG-H14001-24-02799

PATIENT
  Age: 64 Year
  Sex: Female

DRUGS (2)
  1. PACLITAXEL [Suspect]
     Active Substance: PACLITAXEL
     Indication: Breast cancer
     Dosage: 100 MILLIGRAM DILUTED IN 500 ML NORMAL SALINE OVER A TIME OF 1 HR
     Route: 041
     Dates: start: 20240122
  2. PACLITAXEL [Suspect]
     Active Substance: PACLITAXEL
     Dosage: 90 MILLIGRAM
     Route: 041

REACTIONS (3)
  - Neuropathy peripheral [Unknown]
  - Ulcer [Unknown]
  - Sensory loss [Unknown]

NARRATIVE: CASE EVENT DATE: 20240129
